FAERS Safety Report 9418187 (Version 2)
Quarter: 2014Q1

REPORT INFORMATION
  Report Type: Spontaneous
  Country: US (occurrence: US)
  Receive Date: 20130724
  Receipt Date: 20140121
  Transmission Date: 20141002
  Serious: Yes (Hospitalization)
  Sender: FDA-Public Use
  Company Number: US-009507513-1307USA012722

PATIENT
  Sex: Female

DRUGS (13)
  1. ZOSTAVAX [Suspect]
     Indication: PROPHYLAXIS
     Route: 058
  2. PRILOSEC [Suspect]
     Dosage: UNK
  3. PEPCID [Suspect]
     Dosage: UNK
  4. CYMBALTA [Suspect]
     Dosage: UNK
  5. SEROQUEL [Suspect]
     Dosage: UNK
  6. BENADRYL [Suspect]
     Dosage: UNK
  7. CLARITIN [Suspect]
     Dosage: UNK
  8. CICLOPIROX [Suspect]
     Dosage: UNK
  9. LYRICA [Suspect]
     Dosage: UNK
  10. CLOBETASOL PROPIONATE [Suspect]
     Dosage: UNK
  11. ACYCLOVIR [Suspect]
     Dosage: UNK
  12. THERAGRAN-M [Suspect]
     Dosage: UNK
  13. ASPIRIN [Suspect]
     Dosage: UNK

REACTIONS (2)
  - Suicidal ideation [Not Recovered/Not Resolved]
  - Rash generalised [Not Recovered/Not Resolved]
